FAERS Safety Report 25909389 (Version 1)
Quarter: 2025Q4

REPORT INFORMATION
  Report Type: Spontaneous
  Country: CN (occurrence: CN)
  Receive Date: 20251011
  Receipt Date: 20251011
  Transmission Date: 20260118
  Serious: Yes (Hospitalization)
  Sender: ABBVIE
  Company Number: CN-ABBVIE-6496777

PATIENT
  Age: 40 Year
  Sex: Female

DRUGS (6)
  1. BOTOX [Suspect]
     Active Substance: ONABOTULINUMTOXINA
     Indication: Skin wrinkling
     Dosage: TIME INTERVAL: AS NECESSARY: 200 UNIT, EVERY 1 DAYS
     Route: 023
     Dates: start: 20250923, end: 20250923
  2. BOTOX [Suspect]
     Active Substance: ONABOTULINUMTOXINA
     Indication: Skin wrinkling
     Dosage: TIME INTERVAL: AS NECESSARY: 200 UNIT, EVERY 1 DAYS
     Route: 023
     Dates: start: 20250923, end: 20250923
  3. BOTOX [Suspect]
     Active Substance: ONABOTULINUMTOXINA
     Indication: Skin wrinkling
     Dosage: TIME INTERVAL: AS NECESSARY: 200 UNIT, EVERY 1 DAYS
     Route: 023
     Dates: start: 20250923, end: 20250923
  4. BOTOX [Suspect]
     Active Substance: ONABOTULINUMTOXINA
     Indication: Skin wrinkling
     Dosage: TIME INTERVAL: AS NECESSARY: 200 UNIT, EVERY 1 DAYS
     Route: 023
     Dates: start: 20250923, end: 20250923
  5. BOTOX [Suspect]
     Active Substance: ONABOTULINUMTOXINA
     Indication: Skin wrinkling
     Dosage: TIME INTERVAL: AS NECESSARY: 200 UNIT, EVERY 1 DAYS
     Route: 023
     Dates: start: 20250923, end: 20250923
  6. BOTOX [Suspect]
     Active Substance: ONABOTULINUMTOXINA
     Indication: Skin wrinkling
     Dosage: TIME INTERVAL: AS NECESSARY: 200 UNIT, EVERY 1 DAYS
     Route: 023
     Dates: start: 20250923, end: 20250923

REACTIONS (3)
  - Botulism [Not Recovered/Not Resolved]
  - Hypoaesthesia oral [Unknown]
  - Dyspnoea [Unknown]

NARRATIVE: CASE EVENT DATE: 20250924
